FAERS Safety Report 21077732 (Version 2)
Quarter: 2022Q3

REPORT INFORMATION
  Report Type: Spontaneous
  Country: US (occurrence: US)
  Receive Date: 20220713
  Receipt Date: 20220714
  Transmission Date: 20221027
  Serious: No
  Sender: FDA-Public Use
  Company Number: US-PFIZER INC-PV202200020909

PATIENT
  Age: 56 Year
  Sex: Male

DRUGS (1)
  1. LORBRENA [Suspect]
     Active Substance: LORLATINIB
     Indication: Lung neoplasm malignant
     Dosage: 100 MG, 2X/DAY
     Route: 048
     Dates: start: 20220424

REACTIONS (5)
  - Peripheral swelling [Unknown]
  - Night sweats [Unknown]
  - Pyrexia [Unknown]
  - Cognitive disorder [Unknown]
  - Oedema peripheral [Unknown]

NARRATIVE: CASE EVENT DATE: 20220101
